FAERS Safety Report 9425785 (Version 1)
Quarter: 2013Q3

REPORT INFORMATION
  Report Type: Spontaneous
  Country: NO (occurrence: NO)
  Receive Date: 20130729
  Receipt Date: 20130729
  Transmission Date: 20140515
  Serious: Yes (Hospitalization)
  Sender: FDA-Public Use
  Company Number: NO-PFIZER INC-2013215332

PATIENT
  Age: 27 Year
  Sex: Female

DRUGS (2)
  1. SOLU-CORTEF [Suspect]
     Indication: ALLERGY PROPHYLAXIS
     Dosage: 100 MG X 2
     Route: 042
     Dates: start: 20130716, end: 20130716
  2. REMICADE [Suspect]
     Indication: CROHN^S DISEASE
     Dosage: 300 MG EVERY 6.-8. WEEK
     Route: 042
     Dates: start: 2004, end: 20130716

REACTIONS (7)
  - Anaphylactic reaction [Recovered/Resolved]
  - Palpitations [Recovered/Resolved]
  - Dyspnoea [Recovered/Resolved]
  - Hypotension [Recovered/Resolved]
  - Headache [Recovered/Resolved]
  - Blood potassium decreased [Recovered/Resolved]
  - Flushing [Recovered/Resolved]
